FAERS Safety Report 18564875 (Version 1)
Quarter: 2020Q4

REPORT INFORMATION
  Report Type: Spontaneous
  Country: US (occurrence: US)
  Receive Date: 20201201
  Receipt Date: 20201201
  Transmission Date: 20210114
  Serious: Yes (Other)
  Sender: FDA-Public Use
  Company Number: US-009507513-2011USA014009

PATIENT
  Age: 77 Year
  Sex: Female

DRUGS (4)
  1. TRIAMTERENE. [Suspect]
     Active Substance: TRIAMTERENE
     Dosage: UNK
     Route: 065
     Dates: start: 2008
  2. PRINIVIL [Suspect]
     Active Substance: LISINOPRIL
     Dosage: UNK
     Route: 048
     Dates: start: 2008
  3. ASPIRIN. [Suspect]
     Active Substance: ASPIRIN
     Route: 065
  4. SULFUR. [Suspect]
     Active Substance: SULFUR
     Route: 065

REACTIONS (4)
  - Therapeutic response decreased [Unknown]
  - Urticaria [Unknown]
  - Rash [Unknown]
  - Gastric haemorrhage [Unknown]
